FAERS Safety Report 15743649 (Version 7)
Quarter: 2019Q1

REPORT INFORMATION
  Report Type: Spontaneous
  Country: US (occurrence: US)
  Receive Date: 20181220
  Receipt Date: 20190308
  Transmission Date: 20190417
  Serious: Yes (Hospitalization, Other)
  Sender: FDA-Public Use
  Company Number: US-PFIZER INC-2018518451

PATIENT
  Age: 4 Year
  Sex: Male
  Weight: 132 kg

DRUGS (1)
  1. TETRACYCLINE HCL [Suspect]
     Active Substance: TETRACYCLINE HYDROCHLORIDE
     Indication: EAR INFECTION
     Dosage: UNK
     Dates: start: 19660828

REACTIONS (6)
  - Renal disorder [Unknown]
  - Liver injury [Unknown]
  - Tooth discolouration [Recovered/Resolved with Sequelae]
  - Emotional distress [Not Recovered/Not Resolved]
  - Tooth malformation [Recovered/Resolved with Sequelae]
  - Pain [Not Recovered/Not Resolved]

NARRATIVE: CASE EVENT DATE: 19660828
